FAERS Safety Report 21644823 (Version 1)
Quarter: 2022Q4

REPORT INFORMATION
  Report Type: Spontaneous
  Country: JP (occurrence: JP)
  Receive Date: 20221125
  Receipt Date: 20221125
  Transmission Date: 20230113
  Serious: Yes (Hospitalization)
  Sender: FDA-Public Use
  Company Number: JP-ELI_LILLY_AND_COMPANY-JP202211007967

PATIENT
  Age: 65 Year
  Sex: Male

DRUGS (1)
  1. TRULICITY [Suspect]
     Active Substance: DULAGLUTIDE
     Indication: Diabetes mellitus
     Route: 058

REACTIONS (3)
  - Gastric cancer [Recovered/Resolved]
  - Glycosylated haemoglobin increased [Recovered/Resolved]
  - Weight decreased [Unknown]
